FAERS Safety Report 4697531-6 (Version None)
Quarter: 2005Q2

REPORT INFORMATION
  Report Type: 
  Country: None (occurrence: None)
  Receive Date: 20050622
  Receipt Date: 20050613
  Transmission Date: 20051028
  Serious: Yes (Hospitalization)
  Sender: FDA-Public Use
  Company Number: JP-MERCK-0506USA02629

PATIENT
  Age: 56 Year
  Sex: Male

DRUGS (5)
  1. PEPCID [Suspect]
     Route: 042
     Dates: start: 20050521, end: 20050530
  2. BUSCOPAN [Concomitant]
     Route: 051
  3. MIRACLID [Suspect]
     Route: 042
     Dates: start: 20050521, end: 20050530
  4. CEFAMEZIN [Concomitant]
     Route: 051
  5. REMINARON [Suspect]
     Route: 042
     Dates: start: 20050521, end: 20050530

REACTIONS (2)
  - BLOOD CREATININE INCREASED [None]
  - WHITE BLOOD CELL COUNT DECREASED [None]
